FAERS Safety Report 18080659 (Version 1)
Quarter: 2020Q3

REPORT INFORMATION
  Report Type: Other
  Country: NL (occurrence: NL)
  Receive Date: 20200728
  Receipt Date: 20200728
  Transmission Date: 20201103
  Serious: Yes (Other)
  Sender: FDA-Public Use
  Company Number: NL-GLENMARK PHARMACEUTICALS-2018GMK030790

PATIENT

DRUGS (3)
  1. MOMETASONE FUROATE. [Suspect]
     Active Substance: MOMETASONE FUROATE
     Indication: PRODUCT USED FOR UNKNOWN INDICATION
     Dosage: 2 DF, UNK (1X PER DAG 2 PUFJES)
     Route: 065
     Dates: start: 20170926, end: 20170930
  2. SEROXAT [Concomitant]
     Active Substance: PAROXETINE HYDROCHLORIDE
     Indication: PRODUCT USED FOR UNKNOWN INDICATION
     Dosage: UNK
     Route: 065
  3. HYDROCOBAMINE [Concomitant]
     Active Substance: HYDROXOCOBALAMIN HYDROCHLORIDE
     Indication: PRODUCT USED FOR UNKNOWN INDICATION
     Dosage: UNK
     Route: 065

REACTIONS (5)
  - Panic attack [Recovered/Resolved]
  - Crying [Recovered/Resolved]
  - Suicidal ideation [Recovered/Resolved]
  - Swollen tongue [Recovered/Resolved]
  - Nasal congestion [Recovered/Resolved]
